FAERS Safety Report 5087831-2 (Version None)
Quarter: 2006Q3

REPORT INFORMATION
  Report Type: 
  Country: None (occurrence: None)
  Receive Date: 20060824
  Receipt Date: 20060815
  Transmission Date: 20061208
  Serious: Yes (Other)
  Sender: FDA-Public Use
  Company Number: 2006UW16216

PATIENT
  Age: 68 Year
  Sex: Female
  Weight: 95.3 kg

DRUGS (4)
  1. ARIMIDEX [Suspect]
     Indication: METASTASES TO LYMPH NODES
     Route: 048
     Dates: start: 20060809
  2. TAMOXIFEN CITRATE [Suspect]
     Route: 048
     Dates: end: 20060808
  3. SYNTHROID [Concomitant]
  4. ASPIRIN [Concomitant]

REACTIONS (10)
  - ASTHENIA [None]
  - CHEST DISCOMFORT [None]
  - DISTURBANCE IN ATTENTION [None]
  - DIZZINESS [None]
  - DYSPNOEA [None]
  - FEELING ABNORMAL [None]
  - MOVEMENT DISORDER [None]
  - MUSCULAR WEAKNESS [None]
  - PAIN IN EXTREMITY [None]
  - PANIC ATTACK [None]
